FAERS Safety Report 7969615-8 (Version None)
Quarter: 2011Q4

REPORT INFORMATION
  Report Type: 
  Country: None (occurrence: None)
  Receive Date: 20111212
  Receipt Date: 20111129
  Transmission Date: 20120403
  Serious: Yes (Other)
  Sender: FDA-Public Use
  Company Number: ES-PAR PHARMACEUTICAL, INC-2011SCPR003456

PATIENT

DRUGS (4)
  1. CLOZAPINE [Suspect]
     Indication: SCHIZOPHRENIA
     Dosage: 25 MG DAILY
     Route: 065
  2. AMISULPRIDE [Concomitant]
     Indication: SCHIZOPHRENIA
     Dosage: UNK, UNKNOWN
     Route: 065
  3. FLURAZEPAM [Concomitant]
     Indication: SCHIZOPHRENIA
     Dosage: UNK, UNKNOWN
     Route: 065
  4. OLANZAPINE [Suspect]
     Indication: SCHIZOPHRENIA
     Dosage: 10 MG, / DAY
     Route: 065

REACTIONS (3)
  - LIVER DISORDER [None]
  - AUTOIMMUNE HEPATITIS [None]
  - HEPATOCELLULAR INJURY [None]
